FAERS Safety Report 9538600 (Version 2)
Quarter: 2013Q3

REPORT INFORMATION
  Report Type: Spontaneous
  Country: US (occurrence: None)
  Receive Date: 20130917
  Receipt Date: 20130924
  Transmission Date: 20140515
  Serious: Yes (Hospitalization, Other)
  Sender: FDA-Public Use
  Company Number: 2012-001520

PATIENT
  Age: 61 Year
  Sex: Female
  Weight: 54.4 kg

DRUGS (18)
  1. ACTONEL (RISEDRONATE SODIUM) TABLET, 35MG [Suspect]
     Indication: OSTEOPOROSIS PROPHYLAXIS
     Dosage: 35 MG ONCE WEEKLY, PO
     Route: 048
     Dates: start: 20021107, end: 20071126
  2. FOSAMAX (ALENDRONATE SODIUM) [Suspect]
     Dosage: 70 MG ONCE WEEKLY, ORAL
     Route: 048
     Dates: start: 20071126, end: 200805
  3. ALENDRONATE SODIUM (ALENDRONATE SODIUM) (ALENDRONATE SODIUM) [Suspect]
     Dosage: 70 MG ONCE WEEKLY, ORAL
     Route: 048
     Dates: start: 200901, end: 201007
  4. METHOTREXATE (METHOTREXATE) [Concomitant]
  5. FOLIC ACID (FOLIC ACID) [Concomitant]
  6. NABUMETONE (RELAFEN) [Suspect]
  7. DIGOXIN (DIGOXIN) [Concomitant]
  8. ALTACE (RAMIPRIL) [Concomitant]
  9. WARFARIN (WARFARIN) [Concomitant]
  10. ASPIRIN (ACETYLSALICYLIC ACID) [Concomitant]
  11. LIPITOR (ATORVASTATIN CALCIUM) [Concomitant]
  12. SYNTHROID (LEVOTHYROXINE SODIUM) [Concomitant]
  13. NOVOLOG (INSULIN ASPART) [Concomitant]
  14. HUMULIN R (INSULIN HUMAN) [Concomitant]
  15. HUMULIN U (INSULIN HUMAN ZINC SUSPENSION) [Concomitant]
  16. LANTUS (INSULIN GLARGINE) [Concomitant]
  17. CALCIUM / 00751519/ (CALCIUM CARBONATE) [Concomitant]
  18. VITAMIN D / 00318501 / (COLECALCIFEROL) [Concomitant]

REACTIONS (11)
  - Femur fracture [None]
  - Pathological fracture [None]
  - Muscular weakness [None]
  - Pain in extremity [None]
  - Fall [None]
  - Fracture displacement [None]
  - Stress fracture [None]
  - Bone disorder [None]
  - Low turnover osteopathy [None]
  - Pain [None]
  - Device breakage [None]
